FAERS Safety Report 6546996-3 (Version None)
Quarter: 2010Q1

REPORT INFORMATION
  Report Type: 
  Country: None (occurrence: None)
  Receive Date: 20100122
  Receipt Date: 20100114
  Transmission Date: 20100710
  Serious: Yes (Death, Life-Threatening, Hospitalization)
  Sender: FDA-Public Use
  Company Number: B0556531A

PATIENT
  Age: 78 Year
  Sex: Female

DRUGS (20)
  1. FONDAPARINUX SODIUM [Suspect]
     Indication: ACUTE CORONARY SYNDROME
     Route: 058
     Dates: start: 20081218, end: 20081222
  2. ASPIRIN [Suspect]
     Indication: ACUTE CORONARY SYNDROME
     Route: 048
     Dates: start: 20081219, end: 20081223
  3. CLOPIDOGREL [Suspect]
     Indication: ACUTE CORONARY SYNDROME
     Route: 048
     Dates: start: 20081219, end: 20081223
  4. PARACETAMOL [Concomitant]
     Route: 048
     Dates: start: 20080514
  5. AMLODIPINE [Concomitant]
     Indication: HYPERTENSION
     Dosage: 10MG PER DAY
     Route: 048
     Dates: start: 20070704
  6. FERROUS SULFATE TAB [Concomitant]
     Dosage: 200MG PER DAY
     Route: 048
     Dates: start: 20070704
  7. SIMVASTATIN [Concomitant]
     Indication: BLOOD CHOLESTEROL INCREASED
     Dosage: 80MG PER DAY
     Route: 048
     Dates: start: 20070227
  8. DOXAZOSIN MESYLATE [Concomitant]
     Indication: HYPERTENSION
     Dosage: 8MG PER DAY
     Route: 048
     Dates: start: 20050726
  9. HYDRALAZINE [Concomitant]
     Indication: HYPERTENSION
     Dosage: 100MG PER DAY
     Route: 048
     Dates: start: 20050401
  10. ADCAL D3 [Concomitant]
     Indication: OSTEOARTHRITIS
     Route: 048
     Dates: start: 20050214
  11. ALLOPURINOL [Concomitant]
     Indication: GOUT
     Dosage: 200MG PER DAY
     Route: 048
     Dates: start: 20041016
  12. GLICLAZIDE [Concomitant]
     Dosage: 40MG PER DAY
     Route: 048
     Dates: start: 20041004, end: 20041219
  13. FUROSEMIDE [Concomitant]
     Indication: LEFT VENTRICULAR HYPERTROPHY
     Dosage: 40MG PER DAY
     Route: 048
     Dates: start: 20000811
  14. LANSOPRAZOLE [Concomitant]
     Indication: GASTRIC POLYPS
     Dosage: 30MG PER DAY
     Route: 048
     Dates: start: 20000613, end: 20081223
  15. METOPROLOL [Concomitant]
     Indication: HYPERTENSION
     Dosage: 100MG PER DAY
     Route: 048
     Dates: start: 20000613, end: 20081220
  16. GLYCERYL TRINITRATE [Concomitant]
     Route: 060
     Dates: start: 20000804
  17. CLARITHROMYCIN [Concomitant]
     Dosage: 1000MG PER DAY
     Route: 048
     Dates: start: 20081215, end: 20081223
  18. AMOXICILLIN AND CLAVULANATE POTASSIUM [Concomitant]
     Dosage: 3.6G PER DAY
     Route: 042
     Dates: start: 20081215
  19. PANTOPRAZOLE [Concomitant]
     Dosage: 40MG PER DAY
     Route: 042
     Dates: start: 20081223
  20. TRAMADOL [Concomitant]
     Indication: PAIN
     Route: 048
     Dates: start: 20050119

REACTIONS (1)
  - SMALL INTESTINAL HAEMORRHAGE [None]
